FAERS Safety Report 13879480 (Version 1)
Quarter: 2017Q3

REPORT INFORMATION
  Report Type: Spontaneous
  Country: US (occurrence: None)
  Receive Date: 20170814
  Receipt Date: 20170814
  Transmission Date: 20171127
  Serious: Yes (Hospitalization)
  Sender: FDA-Public Use
  Company Number: None

PATIENT
  Age: 63 Year
  Sex: Female
  Weight: 70.7 kg

DRUGS (1)
  1. MEMANTINE HYDROCHLORIDE. [Suspect]
     Active Substance: MEMANTINE HYDROCHLORIDE
     Dates: end: 20170423

REACTIONS (6)
  - Fatigue [None]
  - Injection site extravasation [None]
  - Hypoxia [None]
  - Breast oedema [None]
  - Peripheral swelling [None]
  - Cough [None]

NARRATIVE: CASE EVENT DATE: 20170423
